FAERS Safety Report 7564503-3 (Version None)
Quarter: 2011Q2

REPORT INFORMATION
  Report Type: 
  Country: None (occurrence: None)
  Receive Date: 20110622
  Receipt Date: 20110617
  Transmission Date: 20111010
  Serious: Yes (Life-Threatening, Hospitalization)
  Sender: FDA-Public Use
  Company Number: PHHY2011JP35538

PATIENT
  Sex: Male
  Weight: 79 kg

DRUGS (8)
  1. ACETAMINOPHEN [Concomitant]
     Dosage: 1200 MG, QD
     Route: 048
     Dates: start: 20110328, end: 20110402
  2. BESASTAR [Concomitant]
     Indication: HYPERLIPIDAEMIA
     Dosage: UNK
     Dates: end: 20110401
  3. FUCIDINE CAP [Concomitant]
     Dosage: UNK
     Route: 061
     Dates: start: 20110328, end: 20110402
  4. FAMVIR [Suspect]
     Indication: HERPES ZOSTER
     Dosage: 500 MG, TID
     Route: 048
     Dates: start: 20110328, end: 20110402
  5. LANSOPRAZOLE [Concomitant]
     Dosage: 15 MG, QD
     Dates: start: 20110401
  6. BETAMETHASONE [Concomitant]
     Dosage: 1.5 MG, QD
     Route: 048
     Dates: start: 20110328, end: 20110402
  7. METHYCOBAL [Concomitant]
     Dosage: 3 DF, QD
     Route: 048
     Dates: start: 20110328, end: 20110402
  8. MUCOSTA [Concomitant]
     Dosage: 300 MG, QD
     Route: 048
     Dates: start: 20110328, end: 20110402

REACTIONS (9)
  - ABDOMINAL PAIN [None]
  - BLOOD AMYLASE INCREASED [None]
  - C-REACTIVE PROTEIN INCREASED [None]
  - CHEST PAIN [None]
  - ABDOMINAL DISTENSION [None]
  - ABDOMINAL PAIN UPPER [None]
  - PANCREATITIS ACUTE [None]
  - MALAISE [None]
  - REGURGITATION [None]
